FAERS Safety Report 13664934 (Version 1)
Quarter: 2017Q2

REPORT INFORMATION
  Report Type: Spontaneous
  Country: None (occurrence: US)
  Receive Date: 20170619
  Receipt Date: 20170619
  Transmission Date: 20170830
  Serious: Yes (Hospitalization)
  Sender: FDA-Public Use
  Company Number: None

PATIENT
  Age: 53 Year
  Sex: Male
  Weight: 74.5 kg

DRUGS (2)
  1. ETOPOSIDE (VP-16) [Suspect]
     Active Substance: ETOPOSIDE
     Dates: end: 20170602
  2. CISPLATIN. [Suspect]
     Active Substance: CISPLATIN
     Dates: end: 20170601

REACTIONS (2)
  - Condition aggravated [None]
  - Hyponatraemia [None]

NARRATIVE: CASE EVENT DATE: 20170602
